FAERS Safety Report 5675361-6 (Version None)
Quarter: 2008Q1

REPORT INFORMATION
  Report Type: 
  Country: None (occurrence: None)
  Receive Date: 20080320
  Receipt Date: 20080318
  Transmission Date: 20080703
  Serious: Yes (Death)
  Sender: FDA-Public Use
  Company Number: AT-BOEHRINGER INGELHEIM GMBH, GERMANY-2008-DE-01680GD

PATIENT

DRUGS (5)
  1. IBUPROFEN [Suspect]
  2. MELOXICAM [Suspect]
  3. NAPROXEN [Suspect]
  4. PARACETAMOL [Suspect]
  5. PIROXICAM [Suspect]

REACTIONS (1)
  - DEATH [None]
